FAERS Safety Report 20329633 (Version 1)
Quarter: 2022Q1

REPORT INFORMATION
  Report Type: Spontaneous
  Country: US (occurrence: US)
  Receive Date: 20220112
  Receipt Date: 20220112
  Transmission Date: 20220423
  Serious: No
  Sender: FDA-Public Use
  Company Number: US-BEIGENE USA INC-BGN-2022-000181

PATIENT

DRUGS (16)
  1. BRUKINSA [Suspect]
     Active Substance: ZANUBRUTINIB
     Indication: Chronic lymphocytic leukaemia
  2. SERTRALINE HYDROCHLORIDE [Concomitant]
     Active Substance: SERTRALINE HYDROCHLORIDE
  3. ESOMEPRAZOLE MAGNESIUM [Concomitant]
     Active Substance: ESOMEPRAZOLE MAGNESIUM
  4. ELIQUIS [Concomitant]
     Active Substance: APIXABAN
  5. VITAMIN D [Concomitant]
     Active Substance: VITAMIN D NOS
  6. ATORVASTATIN [Concomitant]
     Active Substance: ATORVASTATIN
  7. ACETAMINOPHEN [Concomitant]
     Active Substance: ACETAMINOPHEN
  8. SIMVASTATIN [Concomitant]
     Active Substance: SIMVASTATIN
     Dosage: UNK
  9. SYSTANE COMPLETE [Concomitant]
     Active Substance: PROPYLENE GLYCOL
  10. SYNTHROID [Concomitant]
     Active Substance: LEVOTHYROXINE SODIUM
     Dosage: UNK
  11. METOPROLOL [Concomitant]
     Active Substance: METOPROLOL
  12. NASONEX [Concomitant]
     Active Substance: MOMETASONE FUROATE
  13. CEFDINIRUM [Concomitant]
     Dosage: UNK
  14. PROLIA [Concomitant]
     Active Substance: DENOSUMAB
     Dosage: UNK
  15. VAGIFEM [Concomitant]
     Active Substance: ESTRADIOL
  16. ALLOPURINOL [Concomitant]
     Active Substance: ALLOPURINOL
     Indication: Chronic lymphocytic leukaemia
     Route: 048

REACTIONS (3)
  - Fatigue [Unknown]
  - Hypersomnia [Unknown]
  - Off label use [Unknown]
